FAERS Safety Report 5757949-7 (Version None)
Quarter: 2008Q2

REPORT INFORMATION
  Report Type: 
  Country: None (occurrence: None)
  Receive Date: 20080530
  Receipt Date: 20080516
  Transmission Date: 20081010
  Serious: Yes (Other)
  Sender: FDA-Public Use
  Company Number: 234657J08USA

PATIENT
  Age: 36 Year
  Sex: Female

DRUGS (1)
  1. REBIF [Suspect]
     Indication: MULTIPLE SCLEROSIS
     Dosage: 44 MCG, 3 IN 1 WEEKS, SUBCUTANEOUS
     Route: 058
     Dates: start: 20070525

REACTIONS (5)
  - GINGIVAL BLEEDING [None]
  - GINGIVAL DISORDER [None]
  - INJECTION SITE REACTION [None]
  - MOUTH HAEMORRHAGE [None]
  - TRANSPLANT [None]
